FAERS Safety Report 5960725-3 (Version None)
Quarter: 2008Q4

REPORT INFORMATION
  Report Type: 
  Country: None (occurrence: None)
  Receive Date: 20081120
  Receipt Date: 20081118
  Transmission Date: 20090506
  Serious: Yes (Death)
  Sender: FDA-Public Use
  Company Number: US-GILEAD-2008-0018613

PATIENT
  Sex: Female
  Weight: 61.744 kg

DRUGS (6)
  1. LETAIRIS [Suspect]
     Indication: PULMONARY ARTERIAL HYPERTENSION
     Route: 048
     Dates: start: 20080901
  2. FUROSEMIDE [Concomitant]
  3. PROPRANOLOL [Concomitant]
  4. ISOSORBIDE [Concomitant]
  5. KLOR-CON [Concomitant]
  6. TRIMETHOPRIM [Concomitant]

REACTIONS (2)
  - DEATH [None]
  - RESPIRATORY ARREST [None]
